FAERS Safety Report 6139790-9 (Version None)
Quarter: 2009Q2

REPORT INFORMATION
  Report Type: 
  Country: None (occurrence: None)
  Receive Date: 20090401
  Receipt Date: 20090128
  Transmission Date: 20091009
  Serious: Yes (Other)
  Sender: FDA-Public Use
  Company Number: B0558294A

PATIENT

DRUGS (4)
  1. BUSULFAN [Suspect]
     Indication: BONE MARROW TRANSPLANT
     Dosage: 3.2MGK PER DAY
     Route: 042
  2. CLOFARABINE [Suspect]
     Indication: BONE MARROW TRANSPLANT
     Route: 042
  3. DEXAMETHASONE TAB [Concomitant]
     Dosage: 12MG PER DAY
     Route: 042
  4. TACROLIMUS [Concomitant]
     Route: 065

REACTIONS (1)
  - ASCITES [None]
